FAERS Safety Report 18952131 (Version 2)
Quarter: 2025Q2

REPORT INFORMATION
  Report Type: Report from Study
  Country: DE (occurrence: DE)
  Receive Date: 20210301
  Receipt Date: 20250619
  Transmission Date: 20250716
  Serious: Yes (Other)
  Sender: AUROBINDO
  Company Number: DE-ARISTO PHARMA-IVAB-LEVE202102041

PATIENT
  Age: 29 Year
  Sex: Female

DRUGS (5)
  1. BISOPROLOL [Suspect]
     Active Substance: BISOPROLOL
     Indication: Syncope
     Route: 065
  2. IVABRADINE [Suspect]
     Active Substance: IVABRADINE
     Indication: Supraventricular tachycardia
     Route: 065
  3. IVABRADINE [Suspect]
     Active Substance: IVABRADINE
     Indication: Syncope
  4. IVABRADINE [Suspect]
     Active Substance: IVABRADINE
     Indication: Tachycardia
  5. LEVETIRACETAM [Suspect]
     Active Substance: LEVETIRACETAM
     Indication: Generalised tonic-clonic seizure
     Route: 065

REACTIONS (6)
  - Foetal growth restriction [Unknown]
  - Oligohydramnios [Unknown]
  - Exposure during pregnancy [Unknown]
  - Contraindicated product administered [Unknown]
  - Vaginal haemorrhage [Unknown]
  - Off label use [Unknown]
